FAERS Safety Report 22611000 (Version 2)
Quarter: 2023Q2

REPORT INFORMATION
  Report Type: Spontaneous
  Country: IT (occurrence: IT)
  Receive Date: 20230616
  Receipt Date: 20230623
  Transmission Date: 20230721
  Serious: Yes (Other)
  Sender: FDA-Public Use
  Company Number: None

PATIENT
  Age: 31 Year
  Sex: Female

DRUGS (2)
  1. KESIMPTA [Suspect]
     Active Substance: OFATUMUMAB
     Indication: Relapsing multiple sclerosis
     Dosage: UNK (THE RECOMMENDED DOSE IS 20 MG OFATUMUMAB ADMINISTERED BY SUBCUTANEOUS INJECTION WITH: AN INITIA
     Route: 058
     Dates: start: 20230503
  2. YASMIN [Concomitant]
     Active Substance: DROSPIRENONE\ETHINYL ESTRADIOL
     Indication: Oral contraception
     Dosage: UNK (ONE TABLET PER DAY FOR 21 CONSECUTIVE DAYS. EACH SUBSEQUENT PACK SHOULD BE STARTED AFTER AN INT
     Route: 048
     Dates: start: 2012

REACTIONS (3)
  - Loss of consciousness [Recovered/Resolved]
  - Vomiting [Recovered/Resolved]
  - Influenza [Recovered/Resolved]

NARRATIVE: CASE EVENT DATE: 20230503
